FAERS Safety Report 23726964 (Version 1)
Quarter: 2024Q2

REPORT INFORMATION
  Report Type: Report from Study
  Country: CA (occurrence: CA)
  Receive Date: 20240410
  Receipt Date: 20240410
  Transmission Date: 20240716
  Serious: Yes (Hospitalization)
  Sender: FDA-Public Use
  Company Number: CA-BAYER-2024A037752

PATIENT
  Sex: Male

DRUGS (3)
  1. EYLEA [Suspect]
     Active Substance: AFLIBERCEPT
     Indication: Age-related macular degeneration
     Dosage: UNK, ONCE (PT. HAS RCVD 3 DOSES- ON 23 OCT 2023, 18 DEC 2023 AND 21 FEB 2024 ): SLN. FOR INJ; 40 MG/
     Dates: start: 20231023, end: 20231023
  2. EYLEA [Suspect]
     Active Substance: AFLIBERCEPT
     Dosage: UNK, ONCE (PT. HAS RCVD. 3 DOSES- ON 23 OCT 2023, 18 DEC 2023 AND 21 FEB 2024 ) ; SOL. FOR INJ.;40 M
     Dates: start: 20231218, end: 20231218
  3. EYLEA [Suspect]
     Active Substance: AFLIBERCEPT
     Dosage: UNK, ONCE (PT. HAS RCVD.3 DOSES- ON 23 OCT 2023, 18 DEC 2023 AND 21 FEB 2024 ); SOL. FOR INJ.; 40 MG
     Dates: start: 20240221

REACTIONS (2)
  - Illness [Unknown]
  - Inappropriate schedule of product administration [Unknown]

NARRATIVE: CASE EVENT DATE: 20231023
